FAERS Safety Report 7800982-1 (Version None)
Quarter: 2011Q4

REPORT INFORMATION
  Report Type: 
  Country: None (occurrence: None)
  Receive Date: 20111007
  Receipt Date: 20110928
  Transmission Date: 20120403
  Serious: Yes (Hospitalization, Other)
  Sender: FDA-Public Use
  Company Number: US-BIOGENIDEC-2011BI025794

PATIENT
  Age: 54 Year
  Sex: Female

DRUGS (1)
  1. TYSABRI [Suspect]
     Indication: MULTIPLE SCLEROSIS
     Route: 042
     Dates: start: 20100915

REACTIONS (5)
  - FEELING JITTERY [None]
  - LUNG NEOPLASM MALIGNANT [None]
  - FALL [None]
  - LUNG CANCER METASTATIC [None]
  - UPPER LIMB FRACTURE [None]
